FAERS Safety Report 7802065-3 (Version None)
Quarter: 2011Q4

REPORT INFORMATION
  Report Type: 
  Country: None (occurrence: None)
  Receive Date: 20111007
  Receipt Date: 20111003
  Transmission Date: 20120403
  Serious: Yes (Life-Threatening)
  Sender: FDA-Public Use
  Company Number: PHHY2011JP76074

PATIENT
  Sex: Male
  Weight: 41 kg

DRUGS (4)
  1. MAGMITT [Concomitant]
  2. POLARAMINE [Concomitant]
  3. TASIGNA [Suspect]
     Indication: CHRONIC MYELOID LEUKAEMIA
     Dosage: 300 MG
     Route: 048
     Dates: start: 20110816, end: 20110818
  4. BERIZYM [Concomitant]

REACTIONS (5)
  - HAEMOGLOBIN DECREASED [None]
  - LUNG DISORDER [None]
  - PLEURAL EFFUSION [None]
  - HAEMATOCRIT DECREASED [None]
  - PYREXIA [None]
